FAERS Safety Report 18764598 (Version 1)
Quarter: 2021Q1

REPORT INFORMATION
  Report Type: Spontaneous
  Country: US (occurrence: US)
  Receive Date: 20210120
  Receipt Date: 20210120
  Transmission Date: 20210419
  Serious: No
  Sender: FDA-Public Use
  Company Number: US-PFIZER INC-2021035980

PATIENT
  Age: 61 Year
  Sex: Female

DRUGS (1)
  1. INLYTA [Suspect]
     Active Substance: AXITINIB
     Dosage: 5 MG, 2X/DAY (1 PILL IN THE AM AND 1 PILL IN THE PM)
     Dates: start: 20201201

REACTIONS (6)
  - SARS-CoV-2 test positive [Unknown]
  - Headache [Unknown]
  - Nasal congestion [Unknown]
  - Dysphonia [Unknown]
  - Diarrhoea [Unknown]
  - Chest pain [Unknown]

NARRATIVE: CASE EVENT DATE: 202101
